FAERS Safety Report 12607983 (Version 2)
Quarter: 2016Q3

REPORT INFORMATION
  Report Type: Spontaneous
  Country: JP (occurrence: JP)
  Receive Date: 20160729
  Receipt Date: 20160913
  Transmission Date: 20161109
  Serious: Yes (Other)
  Sender: FDA-Public Use
  Company Number: PHJP2016JP021572

PATIENT
  Sex: Female
  Weight: 34.9 kg

DRUGS (18)
  1. NEORAL [Suspect]
     Active Substance: CYCLOSPORINE
     Dosage: 200 MG, QD
     Route: 048
     Dates: start: 20091201, end: 20100628
  2. NEORAL [Suspect]
     Active Substance: CYCLOSPORINE
     Dosage: 50 MG, QD
     Route: 048
     Dates: start: 20151215
  3. RENIVACE [Concomitant]
     Active Substance: ENALAPRIL
     Indication: HYPERTENSION
     Dosage: 5 MG, QD
     Route: 048
     Dates: start: 20061121
  4. BONALON [Concomitant]
     Active Substance: ALENDRONATE SODIUM
     Indication: OSTEOPOROSIS
     Dosage: 35 MG, QW
     Route: 048
     Dates: start: 20090210
  5. NEORAL [Suspect]
     Active Substance: CYCLOSPORINE
     Dosage: 100 MG, QD
     Route: 048
     Dates: start: 20121225
  6. PREDONINE [Concomitant]
     Active Substance: PREDNISOLONE\PREDNISOLONE ACETATE\PREDNISOLONE SODIUM SUCCINATE
     Indication: NEPHROTIC SYNDROME
     Dosage: UNK
     Route: 048
     Dates: start: 199601
  7. ALFAROL [Concomitant]
     Active Substance: ALFACALCIDOL
     Indication: OSTEOPOROSIS
     Dosage: 0.5 UG, UNK
     Route: 048
     Dates: start: 20090210
  8. BREDININ [Concomitant]
     Active Substance: MIZORIBINE
     Indication: NEPHROTIC SYNDROME
     Dosage: 350 MG, QD
     Route: 048
     Dates: start: 20080331, end: 20091215
  9. CELLCEPT [Concomitant]
     Active Substance: MYCOPHENOLATE MOFETIL\MYCOPHENOLATE MOFETIL HYDROCHLORIDE
     Indication: NEPHROTIC SYNDROME
     Dosage: 750 MG, BID
     Route: 048
     Dates: start: 20091215
  10. NEORAL [Suspect]
     Active Substance: CYCLOSPORINE
     Dosage: 120 MG, QD
     Route: 048
     Dates: start: 200701, end: 200712
  11. NEORAL [Suspect]
     Active Substance: CYCLOSPORINE
     Dosage: 200 MG, QD
     Route: 048
     Dates: start: 200712
  12. NEORAL [Suspect]
     Active Substance: CYCLOSPORINE
     Indication: NEPHROTIC SYNDROME
     Dosage: UNK
     Route: 048
     Dates: start: 199610
  13. NEORAL [Suspect]
     Active Substance: CYCLOSPORINE
     Dosage: 220 MG, QD
     Route: 048
     Dates: start: 20090615, end: 20091130
  14. NEORAL [Suspect]
     Active Substance: CYCLOSPORINE
     Dosage: 180 MG, QD
     Route: 048
     Dates: start: 20100629, end: 20101108
  15. NEORAL [Suspect]
     Active Substance: CYCLOSPORINE
     Dosage: 150 MG, QD
     Route: 048
     Dates: start: 20101109, end: 20121224
  16. NEORAL [Suspect]
     Active Substance: CYCLOSPORINE
     Dosage: UNK (DOSE REDUCTION)
     Route: 048
     Dates: start: 20140324
  17. SELBEX [Concomitant]
     Active Substance: TEPRENONE
     Indication: PROPHYLAXIS
     Dosage: 50 MG, TID
     Route: 048
  18. ISODINE [Concomitant]
     Active Substance: POVIDONE-IODINE
     Indication: PROPHYLAXIS
     Dosage: UNK
     Route: 049
     Dates: start: 199601

REACTIONS (4)
  - Blood creatinine increased [Unknown]
  - Renal impairment [Recovering/Resolving]
  - Nephrotic syndrome [Recovering/Resolving]
  - Nephropathy toxic [Unknown]

NARRATIVE: CASE EVENT DATE: 2008
